FAERS Safety Report 7900854-8 (Version None)
Quarter: 2011Q4

REPORT INFORMATION
  Report Type: 
  Country: None (occurrence: None)
  Receive Date: 20111108
  Receipt Date: 20111108
  Transmission Date: 20120403
  Serious: Yes (Life-Threatening)
  Sender: FDA-Public Use
  Company Number: None

PATIENT
  Age: 52 Year
  Sex: Male
  Weight: 133.35 kg

DRUGS (11)
  1. CYMBALTA [Suspect]
     Indication: DIABETIC NEUROPATHY
     Dates: start: 20111019, end: 20111026
  2. HUMALOG [Concomitant]
     Route: 058
  3. HYZAAR [Concomitant]
  4. TRAMADOL HCL [Concomitant]
  5. AMLODIPINE [Concomitant]
     Route: 048
  6. LORTAB [Concomitant]
     Route: 048
  7. ASACOL [Concomitant]
  8. PRILOSEC [Concomitant]
     Route: 048
  9. ASPIRIN [Concomitant]
     Route: 048
  10. LANTUS [Concomitant]
     Route: 058
  11. METFORMIN HCL [Concomitant]
     Route: 048

REACTIONS (7)
  - DYSPEPSIA [None]
  - DYSPHAGIA [None]
  - SYNCOPE [None]
  - TUNNEL VISION [None]
  - DYSURIA [None]
  - ABDOMINAL DISTENSION [None]
  - TESTICULAR SWELLING [None]
